FAERS Safety Report 5959446-2 (Version None)
Quarter: 2008Q4

REPORT INFORMATION
  Report Type: 
  Country: None (occurrence: None)
  Receive Date: 20081120
  Receipt Date: 20081022
  Transmission Date: 20090506
  Serious: No
  Sender: FDA-Public Use
  Company Number: A0753079A

PATIENT
  Age: 6 Year
  Sex: Male

DRUGS (1)
  1. VERAMYST [Suspect]
     Dosage: 1SPR PER DAY
     Route: 045

REACTIONS (3)
  - ABNORMAL BEHAVIOUR [None]
  - MOOD SWINGS [None]
  - PANIC ATTACK [None]
